FAERS Safety Report 11173295 (Version 3)
Quarter: 2018Q1

REPORT INFORMATION
  Report Type: Spontaneous
  Country: US (occurrence: US)
  Receive Date: 20150608
  Receipt Date: 20180315
  Transmission Date: 20180508
  Serious: Yes (Hospitalization, Disabling)
  Sender: FDA-Public Use
  Company Number: US-ENDO PHARMACEUTICALS INC.-2015-001221

PATIENT
  Age: 56 Year
  Sex: Male
  Weight: 113.38 kg

DRUGS (3)
  1. FORTESTA [Suspect]
     Active Substance: TESTOSTERONE
     Indication: ANDROGEN REPLACEMENT THERAPY
     Dosage: UNK UNKNOWN, DAILY
     Route: 061
     Dates: start: 201305, end: 201307
  2. ANDROGEL [Suspect]
     Active Substance: TESTOSTERONE
     Indication: ANDROGEN REPLACEMENT THERAPY
     Dosage: 1.62%, UNK UNKNOWN, DAILY
     Route: 065
     Dates: start: 20121227, end: 201305
  3. ANDROGEL [Suspect]
     Active Substance: TESTOSTERONE
     Dosage: 1%, UNK UNKNOWN, DAILY
     Route: 065
     Dates: start: 201005, end: 201212

REACTIONS (2)
  - Coronary artery thrombosis [Not Recovered/Not Resolved]
  - Acute myocardial infarction [Not Recovered/Not Resolved]

NARRATIVE: CASE EVENT DATE: 20130603
